FAERS Safety Report 7417874 (Version 4)
Quarter: 2019Q1

REPORT INFORMATION
  Report Type: Spontaneous
  Country: DE (occurrence: DE)
  Receive Date: 20100612
  Receipt Date: 20190123
  Transmission Date: 20190418
  Serious: Yes (Hospitalization)
  Sender: FDA-Public Use
  Company Number: DE-MYLANLABS-2010S1009779

PATIENT
  Age: 71 Year
  Sex: Female
  Weight: 78 kg

DRUGS (5)
  1. ACTONEL [Suspect]
     Active Substance: RISEDRONATE SODIUM
     Indication: OSTEOPOROSIS
     Dosage: 35 MG,QD
     Route: 048
     Dates: start: 2008, end: 20100505
  2. BISOPROLOL [Suspect]
     Active Substance: BISOPROLOL
     Indication: ATRIAL FIBRILLATION
     Dosage: 2.5 MILLIGRAM, QD (5 MG MILLIGRAM(S) EVERY DAY)
     Route: 048
     Dates: start: 20091203
  3. FALITHROM [Suspect]
     Active Substance: PHENPROCOUMON
     Dosage: 15 MILLIGRAM, QW
     Route: 048
     Dates: start: 20100416, end: 20100504
  4. FALITHROM [Suspect]
     Active Substance: PHENPROCOUMON
     Indication: ATRIAL FIBRILLATION
     Dosage: UNK UNK,
     Route: 048
     Dates: start: 20091203, end: 20100504
  5. ACTONEL [Suspect]
     Active Substance: RISEDRONATE SODIUM
     Dosage: 35 MILLIGRAM, QW
     Route: 048
     Dates: start: 2008, end: 20100505

REACTIONS (12)
  - General physical condition abnormal [Unknown]
  - Acute hepatic failure [Not Recovered/Not Resolved]
  - Prothrombin time prolonged [Recovered/Resolved]
  - Abdominal distension [Not Recovered/Not Resolved]
  - Jaundice [Not Recovered/Not Resolved]
  - Faeces pale [Not Recovered/Not Resolved]
  - Decreased appetite [Not Recovered/Not Resolved]
  - Performance status decreased [Not Recovered/Not Resolved]
  - Drug-induced liver injury [Recovered/Resolved]
  - Vomiting [Not Recovered/Not Resolved]
  - Overdose [Unknown]
  - Heart rate increased [Unknown]

NARRATIVE: CASE EVENT DATE: 20100504
